FAERS Safety Report 24201926 (Version 1)
Quarter: 2024Q3

REPORT INFORMATION
  Report Type: Report from Study
  Country: US (occurrence: None)
  Receive Date: 20240812
  Receipt Date: 20240812
  Transmission Date: 20241017
  Serious: Yes (Other)
  Sender: ASTRAZENECA
  Company Number: 2023A208611

PATIENT
  Sex: Female

DRUGS (1)
  1. LYNPARZA [Suspect]
     Active Substance: OLAPARIB
     Route: 048

REACTIONS (6)
  - Brain neoplasm [Unknown]
  - Pain [Unknown]
  - Haemorrhage [Unknown]
  - Hypokinesia [Unknown]
  - Dysstasia [Unknown]
  - Drug ineffective [Unknown]
